FAERS Safety Report 23882034 (Version 1)
Quarter: 2024Q2

REPORT INFORMATION
  Report Type: Report from Study
  Country: ZA (occurrence: ZA)
  Receive Date: 20240521
  Receipt Date: 20240521
  Transmission Date: 20240716
  Serious: Yes (Death)
  Sender: FDA-Public Use
  Company Number: ZA-ABBVIE-5767678

PATIENT
  Age: 87 Year
  Sex: Female

DRUGS (2)
  1. BOTOX [Suspect]
     Active Substance: ONABOTULINUMTOXINA
     Indication: Muscle spasticity
     Dosage: TIME INTERVAL: AS NECESSARY: TOTAL DOSE 300U (200+100)?EVERY THREE MONTH?FORM STRENGTH: 200 UNIT
     Route: 065
     Dates: start: 2024, end: 2024
  2. BOTOX [Suspect]
     Active Substance: ONABOTULINUMTOXINA
     Indication: Muscle spasticity
     Dosage: TIME INTERVAL: AS NECESSARY: TOTAL DOSE 300U (200+100)?EVERY THREE MONTH?FORM STRENGTH: 100 UNIT
     Route: 065
     Dates: start: 2024, end: 2024

REACTIONS (1)
  - Death [Fatal]
